FAERS Safety Report 19162990 (Version 3)
Quarter: 2021Q2

REPORT INFORMATION
  Report Type: Spontaneous
  Country: JP (occurrence: JP)
  Receive Date: 20210421
  Receipt Date: 20210615
  Transmission Date: 20210717
  Serious: Yes (Death, Hospitalization, Other)
  Sender: FDA-Public Use
  Company Number: JP-ALLERGAN-2115768US

PATIENT
  Sex: Male

DRUGS (8)
  1. E KEPPRA [Concomitant]
     Active Substance: LEVETIRACETAM
     Dosage: 500 MG
  2. BOTOX [Suspect]
     Active Substance: ONABOTULINUMTOXINA
     Dosage: 400 UNITS, SINGLE
     Route: 030
     Dates: start: 20200604, end: 20200604
  3. MAGMITT [Concomitant]
     Active Substance: MAGNESIUM OXIDE
     Dosage: 330 MG
  4. NIFEDIPINE. [Concomitant]
     Active Substance: NIFEDIPINE
  5. BOTOX [Suspect]
     Active Substance: ONABOTULINUMTOXINA
     Indication: MUSCLE SPASTICITY
     Dosage: 400 UNITS, SINGLE
     Route: 030
     Dates: start: 20210304, end: 20210304
  6. LIORESAL [Concomitant]
     Active Substance: BACLOFEN
     Dosage: 5 MG
  7. TEGRETOL [Concomitant]
     Active Substance: CARBAMAZEPINE
     Dosage: 500 MG
  8. ADALAT [Concomitant]
     Active Substance: NIFEDIPINE

REACTIONS (5)
  - Loss of consciousness [Unknown]
  - Cerebral haemorrhage [Fatal]
  - Balance disorder [Recovered/Resolved]
  - Thalamus haemorrhage [Recovered/Resolved]
  - Malaise [Recovered/Resolved]

NARRATIVE: CASE EVENT DATE: 20200924
